FAERS Safety Report 26098952 (Version 1)
Quarter: 2025Q4

REPORT INFORMATION
  Report Type: Report from Study
  Country: PK (occurrence: PK)
  Receive Date: 20251127
  Receipt Date: 20251127
  Transmission Date: 20260117
  Serious: Yes (Other)
  Sender: ROCHE
  Company Number: PK-ROCHE-10000438460

PATIENT
  Age: 76 Year
  Sex: Male

DRUGS (2)
  1. AVASTIN [Suspect]
     Active Substance: BEVACIZUMAB
     Indication: Hepatocellular carcinoma
     Dosage: COMPLETED FOUR CYCLES OF IMMUNOTHERAPY WITH ATEZOLIZUMAB 1200 MG AND BEVACIZUMAB 1200 MG ON 26-SEP-2
     Route: 042
     Dates: start: 20250819
  2. TECENTRIQ [Suspect]
     Active Substance: ATEZOLIZUMAB
     Indication: Hepatocellular carcinoma
     Dosage: COMPLETED FOUR CYCLES OF IMMUNOTHERAPY WITH ATEZOLIZUMAB 1200 MG AND BEVACIZUMAB 1200 MG ON 26-SEP-2
     Route: 042
     Dates: start: 20250819

REACTIONS (1)
  - Renal impairment [Not Recovered/Not Resolved]

NARRATIVE: CASE EVENT DATE: 20251015
